FAERS Safety Report 11855959 (Version 1)
Quarter: 2015Q4

REPORT INFORMATION
  Report Type: Spontaneous
  Country: US (occurrence: US)
  Receive Date: 20151221
  Receipt Date: 20151221
  Transmission Date: 20160305
  Serious: Yes (Hospitalization, Other)
  Sender: FDA-Public Use
  Company Number: US-ROXANE LABORATORIES, INC.-2015-RO-02105RO

PATIENT
  Age: 38 Year
  Sex: Male

DRUGS (1)
  1. QUETIAPINE FUMARATE 50 MG, 100 MG, 200 MG, 300 MG, AND 400 MG [Suspect]
     Active Substance: QUETIAPINE FUMARATE
     Indication: HYPOMANIA
     Dosage: 75 MG
     Route: 065

REACTIONS (4)
  - Psychotic behaviour [Recovered/Resolved]
  - Mania [Recovered/Resolved]
  - Sedation [Unknown]
  - Homicidal ideation [Recovered/Resolved]
